FAERS Safety Report 4779819-3 (Version None)
Quarter: 2005Q3

REPORT INFORMATION
  Report Type: 
  Country: None (occurrence: None)
  Receive Date: 20050927
  Receipt Date: 20050615
  Transmission Date: 20060218
  Serious: Yes (Hospitalization)
  Sender: FDA-Public Use
  Company Number: CH-AMGEN-UK139651

PATIENT
  Sex: Female
  Weight: 72 kg

DRUGS (10)
  1. MIMPARA [Suspect]
     Indication: HYPERPARATHYROIDISM SECONDARY
     Route: 048
  2. CYCLOSPORINE [Concomitant]
     Route: 065
  3. PREDNISONE [Concomitant]
     Route: 065
  4. METOPROLOL SUCCINATE [Concomitant]
     Route: 065
  5. COZAAR [Concomitant]
     Route: 065
  6. TORSEMIDE [Concomitant]
     Route: 065
  7. GEVILON [Concomitant]
     Route: 065
  8. NEURONTIN [Concomitant]
     Route: 065
  9. MARCOUMAR [Concomitant]
     Route: 065
  10. CELLCEPT [Concomitant]

REACTIONS (2)
  - DIZZINESS [None]
  - MYOCARDIAL INFARCTION [None]
